FAERS Safety Report 10246300 (Version 1)
Quarter: 2014Q2

REPORT INFORMATION
  Report Type: Spontaneous
  Country: US (occurrence: None)
  Receive Date: 20140617
  Receipt Date: 20140617
  Transmission Date: 20141212
  Serious: Yes (Other)
  Sender: FDA-Public Use
  Company Number: None

PATIENT
  Age: 70 Year
  Sex: Female
  Weight: 72.58 kg

DRUGS (1)
  1. HYDROCHLOROTHIAZIDE [Suspect]
     Route: 048

REACTIONS (4)
  - Abdominal discomfort [None]
  - Nausea [None]
  - Malaise [None]
  - Product quality issue [None]
